FAERS Safety Report 9841486 (Version 1)
Quarter: 2013Q4

REPORT INFORMATION
  Report Type: Spontaneous
  Country: US (occurrence: None)
  Receive Date: 20131212
  Receipt Date: 20131212
  Transmission Date: 20140711
  Serious: No
  Sender: FDA-Public Use
  Company Number: GAM-140-12-US

PATIENT
  Age: 30 Year
  Sex: Female

DRUGS (1)
  1. INTRAVENOUS IMMUNE GLOBULIN 5 %(OCTAPHARM) [Suspect]
     Indication: IMMUNODEFICIENCY COMMON VARIABLE
     Dates: start: 20120713

REACTIONS (4)
  - Malaise [None]
  - Paraesthesia [None]
  - Muscle spasms [None]
  - Nausea [None]
